FAERS Safety Report 8755879 (Version 10)
Quarter: 2014Q3

REPORT INFORMATION
  Report Type: Spontaneous
  Country: US (occurrence: US)
  Receive Date: 20120827
  Receipt Date: 20140717
  Transmission Date: 20150326
  Serious: Yes (Hospitalization, Other)
  Sender: FDA-Public Use
  Company Number: US-009507513-2012SP022368

PATIENT
  Sex: Female
  Weight: 68.27 kg

DRUGS (1)
  1. NUVARING [Suspect]
     Active Substance: ETHINYL ESTRADIOL\ETONOGESTREL
     Indication: CONTRACEPTION
     Dosage: UNK
     Route: 067
     Dates: start: 200509, end: 200905

REACTIONS (9)
  - Deep vein thrombosis [Unknown]
  - Haematochezia [Unknown]
  - Abdominal pain [Unknown]
  - Coagulopathy [Unknown]
  - Headache [Unknown]
  - Urethral dilation procedure [Recovered/Resolved]
  - Pulmonary embolism [Unknown]
  - Weight decreased [Unknown]
  - Diarrhoea [Recovered/Resolved]

NARRATIVE: CASE EVENT DATE: 20060115
